FAERS Safety Report 10026454 (Version 1)
Quarter: 2014Q1

REPORT INFORMATION
  Report Type: Report from Study
  Country: JP (occurrence: JP)
  Receive Date: 20140321
  Receipt Date: 20140321
  Transmission Date: 20141002
  Serious: Yes (Hospitalization, Other)
  Sender: FDA-Public Use
  Company Number: JP-009507513-1403JPN009359

PATIENT
  Age: 88 Year
  Sex: Female
  Weight: 51 kg

DRUGS (9)
  1. JANUVIA TABLETS 50MG [Suspect]
     Indication: TYPE 2 DIABETES MELLITUS
     Dosage: 50 MG, QD
     Route: 048
     Dates: start: 20100928, end: 20111001
  2. ARICEPT [Concomitant]
     Indication: DEMENTIA ALZHEIMER^S TYPE
     Dosage: 5 MG, QD
     Route: 048
     Dates: start: 20081212
  3. WARFARIN [Concomitant]
     Indication: ATRIAL FIBRILLATION
     Dosage: 2 MG, QD
     Route: 048
     Dates: start: 20081212
  4. D-ALPHA [Concomitant]
     Indication: OSTEOPOROSIS
     Dosage: 0.5 MICROGRAM, QD
     Route: 048
     Dates: start: 20081212, end: 20110928
  5. ANPLAG [Concomitant]
     Indication: ARTERIAL OCCLUSIVE DISEASE
     Dosage: 100 MG, TID
     Route: 048
     Dates: start: 20090707, end: 20110928
  6. MUCOSTA [Concomitant]
     Indication: GASTRITIS
     Dosage: 100 MG, TID
     Route: 048
     Dates: start: 20081212, end: 20110928
  7. VESICARE [Concomitant]
     Indication: HYPERTONIC BLADDER
     Dosage: 5 MG, QD
     Route: 048
     Dates: start: 20101129, end: 20110928
  8. MICARDIS [Concomitant]
     Indication: HYPERTENSION
     Dosage: 20 MG, QD
     Route: 048
     Dates: start: 20101220, end: 20111101
  9. MELBIN [Concomitant]
     Indication: TYPE 2 DIABETES MELLITUS
     Dosage: 250 MG, BID
     Route: 048
     Dates: start: 20101025, end: 20110928

REACTIONS (3)
  - Cerebral infarction [Unknown]
  - Gastrostomy [Unknown]
  - Dysphagia [Unknown]
